FAERS Safety Report 7017692-3 (Version None)
Quarter: 2010Q3

REPORT INFORMATION
  Report Type: 
  Country: None (occurrence: None)
  Receive Date: 20100928
  Receipt Date: 20100915
  Transmission Date: 20110219
  Serious: Yes (Other)
  Sender: FDA-Public Use
  Company Number: DE-RANBAXY-2010RR-38290

PATIENT
  Sex: Male

DRUGS (2)
  1. CLINDAMYCIN [Suspect]
     Indication: BONE DISORDER
     Dosage: 2 DF, QD
     Route: 048
  2. CARBAMAZEPINE [Concomitant]
     Indication: CONVULSION

REACTIONS (5)
  - ASTHENIA [None]
  - CARDIOVASCULAR INSUFFICIENCY [None]
  - ERYTHEMA [None]
  - RASH [None]
  - SKIN EXFOLIATION [None]
